FAERS Safety Report 11067935 (Version 5)
Quarter: 2015Q3

REPORT INFORMATION
  Report Type: Spontaneous
  Country: IT (occurrence: IT)
  Receive Date: 20150427
  Receipt Date: 20150703
  Transmission Date: 20151125
  Serious: Yes (Hospitalization)
  Sender: FDA-Public Use
  Company Number: IT-ROCHE-1568075

PATIENT
  Age: 69 Year
  Sex: Male
  Weight: 61 kg

DRUGS (6)
  1. ROACTEMRA [Suspect]
     Active Substance: TOCILIZUMAB
     Dosage: 400 MG 1 VIAL AND  80 MG 1 VIAL
     Route: 041
     Dates: start: 20150114
  2. DELTACORTENE [Concomitant]
     Active Substance: PREDNISONE
     Route: 048
  3. ROACTEMRA [Suspect]
     Active Substance: TOCILIZUMAB
     Indication: RHEUMATOID ARTHRITIS
     Dosage: STARTING DOSE 8MG/KG
     Route: 041
     Dates: start: 20100901, end: 20150130
  4. ROACTEMRA [Suspect]
     Active Substance: TOCILIZUMAB
     Dosage: 400 MG 1 VIAL AND  80 MG 1 VIAL
     Route: 041
     Dates: start: 20140910
  5. ROACTEMRA [Suspect]
     Active Substance: TOCILIZUMAB
     Dosage: 200 MG 1 VIAL AND
     Route: 041
     Dates: start: 20141210
  6. ROACTEMRA [Suspect]
     Active Substance: TOCILIZUMAB
     Dosage: 200 MG 1 VIAL AND 80 MG 4 VIALS
     Route: 041
     Dates: start: 20141008

REACTIONS (1)
  - Papillary thyroid cancer [Unknown]

NARRATIVE: CASE EVENT DATE: 20150201
